FAERS Safety Report 6831919-X (Version None)
Quarter: 2010Q3

REPORT INFORMATION
  Report Type: 
  Country: None (occurrence: None)
  Receive Date: 20100712
  Receipt Date: 20100706
  Transmission Date: 20110219
  Serious: Yes (Life-Threatening, Hospitalization)
  Sender: FDA-Public Use
  Company Number: JP-MERCK-1006USA01829

PATIENT
  Age: 82 Year
  Sex: Female
  Weight: 48 kg

DRUGS (11)
  1. JANUVIA [Suspect]
     Route: 048
     Dates: start: 20100526
  2. LANIRAPID [Concomitant]
     Route: 048
     Dates: start: 20100317
  3. CRESTOR [Concomitant]
     Route: 048
     Dates: start: 20100317
  4. PLAVIX [Concomitant]
     Route: 048
     Dates: start: 20100317
  5. SEIBULE [Concomitant]
     Route: 048
     Dates: start: 20100317
  6. METHYCOBAL [Concomitant]
     Route: 048
     Dates: start: 20100317
  7. FOSAMAX [Concomitant]
     Route: 048
     Dates: start: 20100317
  8. MAINTATE [Concomitant]
     Route: 048
     Dates: start: 20100318
  9. BLOPRESS [Concomitant]
     Route: 048
     Dates: start: 20100318
  10. AMARYL [Concomitant]
     Route: 048
     Dates: start: 20100318
  11. ACTOS [Concomitant]
     Route: 048
     Dates: start: 20100317, end: 20100525

REACTIONS (2)
  - HEPATIC FUNCTION ABNORMAL [None]
  - PANCREATIC CARCINOMA [None]
